FAERS Safety Report 11958185 (Version 2)
Quarter: 2016Q2

REPORT INFORMATION
  Report Type: Report from Study
  Country: US (occurrence: US)
  Receive Date: 20160126
  Receipt Date: 20160511
  Transmission Date: 20160815
  Serious: Yes (Other)
  Sender: FDA-Public Use
  Company Number: US-AMGEN-USASL2016007887

PATIENT
  Age: 40 Year
  Sex: Male

DRUGS (1)
  1. ENBREL [Suspect]
     Active Substance: ETANERCEPT
     Indication: ANKYLOSING SPONDYLITIS
     Dosage: 50 MG, QWK
     Route: 058
     Dates: start: 201512, end: 201601

REACTIONS (8)
  - Headache [Recovering/Resolving]
  - Influenza [Recovered/Resolved]
  - Weight decreased [Unknown]
  - Type 1 diabetes mellitus [Unknown]
  - Abdominal discomfort [Recovering/Resolving]
  - Vomiting [Recovering/Resolving]
  - Myalgia [Recovering/Resolving]
  - Pyrexia [Recovered/Resolved]

NARRATIVE: CASE EVENT DATE: 2015
